FAERS Safety Report 8125887-0 (Version None)
Quarter: 2012Q1

REPORT INFORMATION
  Report Type: 
  Country: None (occurrence: None)
  Receive Date: 20120209
  Receipt Date: 20120208
  Transmission Date: 20120608
  Serious: Yes (Other)
  Sender: FDA-Public Use
  Company Number: IT-BAYER-2012-012925

PATIENT
  Age: 57 Year
  Sex: Male

DRUGS (6)
  1. DEXAMETHASONE [Suspect]
     Indication: STEM CELL TRANSPLANT
     Dosage: 40 MG/D ON DAYS 1, 8, 15, 22
     Route: 048
  2. LENALIDOMIDE [Suspect]
     Indication: STEM CELL TRANSPLANT
     Dosage: 25 MG FOR 21 DAYS FOR 4 CYCLES
     Route: 048
  3. EPOGEN [Suspect]
  4. DEXAMETHASONE [Suspect]
     Indication: MULTIPLE MYELOMA
  5. ACETYLSALICYLIC ACID SRT [Suspect]
     Indication: THROMBOSIS PROPHYLAXIS
     Dosage: DAILY DOSE 100 MG
     Route: 048
  6. LENALIDOMIDE [Suspect]
     Indication: MULTIPLE MYELOMA

REACTIONS (1)
  - PULMONARY EMBOLISM [None]
